FAERS Safety Report 18559641 (Version 5)
Quarter: 2021Q4

REPORT INFORMATION
  Report Type: Spontaneous
  Country: US (occurrence: US)
  Receive Date: 20201130
  Receipt Date: 20211230
  Transmission Date: 20220303
  Serious: No
  Sender: FDA-Public Use
  Company Number: US-PFIZER INC-2020467968

PATIENT
  Age: 68 Year

DRUGS (2)
  1. PREMARIN [Suspect]
     Active Substance: ESTROGENS, CONJUGATED
     Indication: Hot flush
     Dosage: UNK
     Dates: start: 1999
  2. PREMARIN [Suspect]
     Active Substance: ESTROGENS, CONJUGATED
     Dosage: 0.03 MG

REACTIONS (5)
  - Loss of personal independence in daily activities [Unknown]
  - Drug intolerance [Unknown]
  - Memory impairment [Unknown]
  - Blood pressure increased [Unknown]
  - Intentional product misuse [Unknown]
